FAERS Safety Report 10816687 (Version 3)
Quarter: 2015Q3

REPORT INFORMATION
  Report Type: Report from Study
  Country: US (occurrence: US)
  Receive Date: 20150218
  Receipt Date: 20150721
  Transmission Date: 20151125
  Serious: Yes (Other)
  Sender: FDA-Public Use
  Company Number: US-BIOMARINAP-US-2015-105546

PATIENT
  Sex: Female
  Weight: 91.6 kg

DRUGS (3)
  1. KUVAN [Suspect]
     Active Substance: SAPROPTERIN DIHYDROCHLORIDE
     Indication: PHENYLKETONURIA
     Dosage: 1600 MG, QD
     Route: 048
     Dates: start: 20140703
  2. VITAMIN D3 [Concomitant]
     Active Substance: CHOLECALCIFEROL
     Indication: PRODUCT USED FOR UNKNOWN INDICATION
     Dosage: 1000 IU, UNK
     Route: 048
  3. FISH OIL [Concomitant]
     Active Substance: FISH OIL
     Indication: PRODUCT USED FOR UNKNOWN INDICATION
     Dosage: 1000 MG, QD
     Route: 048

REACTIONS (2)
  - Foetal death [Recovered/Resolved]
  - Exposure during pregnancy [Recovered/Resolved]
